FAERS Safety Report 13187537 (Version 1)
Quarter: 2017Q1

REPORT INFORMATION
  Report Type: Spontaneous
  Country: US (occurrence: US)
  Receive Date: 20170206
  Receipt Date: 20170206
  Transmission Date: 20170428
  Serious: No
  Sender: FDA-Public Use
  Company Number: US-PFIZER INC-2017046340

PATIENT
  Age: 75 Year
  Sex: Female
  Weight: 77 kg

DRUGS (3)
  1. PREMARIN [Suspect]
     Active Substance: ESTROGENS, CONJUGATED
     Indication: VULVOVAGINAL DRYNESS
     Dosage: 1 MG, UNK
     Route: 067
  2. SIMVASTATIN. [Concomitant]
     Active Substance: SIMVASTATIN
     Indication: BLOOD CHOLESTEROL ABNORMAL
     Dosage: 20 MG, 1X/DAY
  3. PREMARIN [Suspect]
     Active Substance: ESTROGENS, CONJUGATED
     Dosage: 1 MG, UNK
     Route: 067
     Dates: start: 201701, end: 201701

REACTIONS (3)
  - Breast enlargement [Recovering/Resolving]
  - Expired product administered [Unknown]
  - Breast pain [Recovering/Resolving]

NARRATIVE: CASE EVENT DATE: 201701
